FAERS Safety Report 5786778-3 (Version None)
Quarter: 2008Q2

REPORT INFORMATION
  Report Type: 
  Country: None (occurrence: None)
  Receive Date: 20080618
  Receipt Date: 20080606
  Transmission Date: 20081010
  Serious: Yes (Death)
  Sender: FDA-Public Use
  Company Number: 2007AL000896

PATIENT
  Age: 47 Year
  Sex: Male

DRUGS (1)
  1. SERTRALINE HYDROCHLORIDE [Suspect]
     Dosage: 200 MG;QD
     Dates: end: 20050901

REACTIONS (2)
  - DRUG LEVEL INCREASED [None]
  - FALL [None]
